FAERS Safety Report 16410107 (Version 13)
Quarter: 2021Q3

REPORT INFORMATION
  Report Type: Report from Study
  Country: IT (occurrence: IT)
  Receive Date: 20190610
  Receipt Date: 20210923
  Transmission Date: 20211014
  Serious: Yes (Hospitalization, Other)
  Sender: FDA-Public Use
  Company Number: IT-MYLANLABS-2019M1053419

PATIENT
  Age: 65 Year
  Sex: Female
  Weight: 55 kg

DRUGS (46)
  1. PACLITAXEL. [Suspect]
     Active Substance: PACLITAXEL
     Indication: HER2 POSITIVE BREAST CANCER
     Dosage: 80 MILLIGRAM/SQ. METER, QW/START DATE: 31?JUL?2018/END DATE:23?OCT?2018
     Route: 042
  2. DENOSUMAB [Suspect]
     Active Substance: DENOSUMAB
     Indication: BREAST CANCER
     Dosage: 60 MILLIGRAM, QD (OTHER IMMUNOTHERAPY)/START DATE: 09?OCT?2018
     Route: 058
  3. PERTUZUMAB. [Suspect]
     Active Substance: PERTUZUMAB
     Indication: BREAST CANCER
  4. TAXOTERE [Suspect]
     Active Substance: DOCETAXEL
     Indication: HER2 POSITIVE BREAST CANCER
     Dosage: 75 MILLIGRAM/SQ. METER, Q3W
     Route: 042
     Dates: start: 20180507, end: 20180619
  5. EUTIROX [Concomitant]
     Active Substance: LEVOTHYROXINE SODIUM
     Dosage: UNK
  6. BISOPROLOLO [Concomitant]
     Active Substance: BISOPROLOL FUMARATE
     Dosage: ONGOING = CHECKED
     Dates: start: 20190701
  7. SOLDESAM [Concomitant]
     Active Substance: DEXAMETHASONE
     Dosage: ONGOING = CHECKED
     Dates: start: 20180502
  8. AMIKACINA                          /00391001/ [Concomitant]
     Active Substance: AMIKACIN
     Indication: FEBRILE NEUTROPENIA
     Dosage: UNK, ONGOING = NOT CHECKED
     Dates: start: 20180630, end: 20180702
  9. CHLORPHENIRAMINE                   /00072501/ [Concomitant]
     Active Substance: CHLORPHENIRAMINE
     Dosage: UNK ONGOING = CHECKED
     Dates: start: 20180507
  10. AROMASINE [Suspect]
     Active Substance: EXEMESTANE
     Indication: BREAST CANCER
     Dosage: 1 MILLIGRAM, QD/START DATE: 13?FEB?2019,END DATE:30?OCT?2019
     Route: 048
  11. DUROGESIC [Concomitant]
     Active Substance: FENTANYL
     Dosage: UNK
     Dates: start: 20180502
  12. DOCETAXEL. [Suspect]
     Active Substance: DOCETAXEL
     Indication: HER2 POSITIVE BREAST CANCER
     Dosage: 75 MILLIGRAM/SQ. METER, 3XW, LAST DOSE ON 19/JUN/2018
     Route: 042
     Dates: start: 20180507, end: 20180619
  13. AROMASINE [Suspect]
     Active Substance: EXEMESTANE
     Indication: HER2 POSITIVE BREAST CANCER
  14. EUTIROX [Concomitant]
     Active Substance: LEVOTHYROXINE SODIUM
     Dosage: ONGOING = CHECKED
  15. BISOPROLOLO [Concomitant]
     Active Substance: BISOPROLOL FUMARATE
     Indication: HYPERTENSION
     Dosage: ONGOING = NOT CHECKED
     Dates: end: 20180615
  16. CHLORPHENAMINE [Concomitant]
     Active Substance: CHLORPHENIRAMINE MALEATE
     Dosage: ONGOING = CHECKED
     Route: 065
     Dates: start: 20180507
  17. MYCOSTATIN [Concomitant]
     Active Substance: NYSTATIN
     Indication: DYSPHAGIA
     Dosage: ONGOING = NOT CHECKED
     Route: 065
     Dates: start: 20180615, end: 20180625
  18. RAMIPRIL. [Concomitant]
     Active Substance: RAMIPRIL
     Indication: HYPERTENSION
     Dosage: ONGOING = CHECKED
     Dates: start: 20190701
  19. LAPATINIB [Suspect]
     Active Substance: LAPATINIB
     Indication: BREAST CANCER
     Dosage: 1250 MILLIGRAM, QD/ START DATE: 20?FEB?2020
     Route: 048
  20. LAPATINIB [Suspect]
     Active Substance: LAPATINIB
     Indication: HER2 POSITIVE BREAST CANCER
  21. CAPECITABINE. [Suspect]
     Active Substance: CAPECITABINE
     Indication: BREAST CANCER
     Dosage: 2000 MILLIGRAM/SQ. METER, QD/ STAR DATE: 20?FEB?2020
     Route: 048
  22. TRASTUZUMAB EMTANSINE [Suspect]
     Active Substance: ADO-TRASTUZUMAB EMTANSINE
     Indication: BREAST CANCER
     Dosage: 3.6 MILLIGRAM/KILOGRAM, Q3W/START DATE: 09?OCT?2019/END DATE:09?JAN?2020
     Route: 042
  23. ENAPREN [Concomitant]
     Active Substance: ENALAPRIL MALEATE
     Dosage: ONGOING = NOT CHECKED
     Dates: end: 20180615
  24. NATECAL [Concomitant]
     Active Substance: CALCIUM CARBONATE\CHOLECALCIFEROL
     Dosage: UNK
     Dates: end: 20180618
  25. CEFEPIME [Concomitant]
     Active Substance: CEFEPIME HYDROCHLORIDE
     Indication: FEBRILE NEUTROPENIA
     Dosage: ONGOING = NOT CHECKED
     Dates: start: 20180626, end: 20180717
  26. TEICOPLANIN [Concomitant]
     Active Substance: TEICOPLANIN
     Indication: FEBRILE NEUTROPENIA
     Dosage: ONGOING = NOT CHECKED
     Dates: start: 20180702
  27. DIBASE [Concomitant]
     Active Substance: CHOLECALCIFEROL
     Dosage: ONGOING = CHECKED
     Route: 065
     Dates: start: 20180727
  28. ARIXTRA [Concomitant]
     Active Substance: FONDAPARINUX SODIUM
     Indication: THROMBOSIS
     Dosage: ONGOING = NOT CHECKED
     Dates: start: 20200806, end: 20210224
  29. TRASTUZUMAB. [Suspect]
     Active Substance: TRASTUZUMAB
     Indication: HER2 POSITIVE BREAST CANCER
     Dosage: 3.6 MILLIGRAM/KILOGRAM/ START DATE: 09?OCT?2019
     Route: 042
  30. TAXOL [Suspect]
     Active Substance: PACLITAXEL
     Indication: BREAST CANCER
     Dosage: 80 MILLIGRAM/SQ. METER, QW/START DATE: 31?JUL?2018, END DATE: 23?OCT?2018
     Route: 042
  31. PERTUZUMAB. [Suspect]
     Active Substance: PERTUZUMAB
     Indication: HER2 POSITIVE BREAST CANCER
     Dosage: 840 MILLIGRAM, Q3W
     Route: 042
     Dates: start: 20180507, end: 20180529
  32. ZOLOFT [Concomitant]
     Active Substance: SERTRALINE HYDROCHLORIDE
     Dosage: ONGOING = CHECKED
     Route: 065
     Dates: start: 20160803
  33. UREA. [Concomitant]
     Active Substance: UREA
     Indication: SKIN TOXICITY
     Dosage: UNK
     Dates: start: 20200415
  34. CACIT                              /07357001/ [Concomitant]
     Active Substance: CALCIUM\VITAMIN D
     Dosage: UNK
     Dates: start: 20180727
  35. TRASTUZUMAB. [Suspect]
     Active Substance: TRASTUZUMAB
     Dosage: 440 MILLIGRAM, Q3W
     Route: 042
     Dates: start: 20180507, end: 20180529
  36. NATECAL [Concomitant]
     Active Substance: CALCIUM CARBONATE\CHOLECALCIFEROL
     Dosage: ONGOING = CHECKED
     Dates: start: 20190615
  37. TACHIPIRINA [Concomitant]
     Active Substance: ACETAMINOPHEN
     Dosage: ONGOING = CHECKED
     Dates: start: 20200402
  38. POLASE                             /09539801/ [Concomitant]
     Indication: HYPOKALAEMIA
     Dosage: ONGOING  NOT CHECKED
     Dates: start: 20180615, end: 20180626
  39. RANITIDINE. [Concomitant]
     Active Substance: RANITIDINE
     Dosage: UNK
     Dates: start: 20180507, end: 20181002
  40. PLASIL                             /00041901/ [Concomitant]
     Active Substance: METOCLOPRAMIDE
     Indication: NAUSEA
     Dosage: ONGOING = NOT CHECKED
     Dates: start: 20180625, end: 20180731
  41. CAPECITABINE. [Suspect]
     Active Substance: CAPECITABINE
     Indication: HER2 POSITIVE BREAST CANCER
  42. DEXAMETHASONE. [Concomitant]
     Active Substance: DEXAMETHASONE
     Dosage: UNK
     Dates: start: 20180507, end: 20181002
  43. LEVOFLOXACIN. [Concomitant]
     Active Substance: LEVOFLOXACIN
     Indication: FEBRILE NEUTROPENIA
     Dosage: ONGOING = NOT CHECKED
     Route: 065
     Dates: start: 20180626, end: 20180727
  44. FLUCONAZOLE. [Concomitant]
     Active Substance: FLUCONAZOLE
     Indication: DYSGEUSIA
     Dosage: UNK
     Route: 065
     Dates: start: 20180626, end: 20180727
  45. PANTOPRAZOLE [Concomitant]
     Active Substance: PANTOPRAZOLE
     Dosage: UNK
     Dates: start: 20191015
  46. CACIT                              /07357001/ [Concomitant]
     Active Substance: CALCIUM\VITAMIN D
     Dosage: UNK
     Dates: start: 20180915, end: 20190615

REACTIONS (12)
  - Fatigue [Recovered/Resolved]
  - Hypokalaemia [Recovered/Resolved]
  - Diarrhoea [Recovered/Resolved]
  - Arthralgia [Recovered/Resolved]
  - Dysphagia [Recovered/Resolved]
  - Febrile neutropenia [Recovered/Resolved]
  - Nausea [Recovered/Resolved]
  - Bone pain [Not Recovered/Not Resolved]
  - Performance status decreased [Recovered/Resolved]
  - Palmar-plantar erythrodysaesthesia syndrome [Recovered/Resolved]
  - Dysaesthesia [Recovered/Resolved]
  - Dysgeusia [Recovered/Resolved]

NARRATIVE: CASE EVENT DATE: 20180615
